FAERS Safety Report 15814197 (Version 1)
Quarter: 2019Q1

REPORT INFORMATION
  Report Type: Spontaneous
  Country: US (occurrence: US)
  Receive Date: 20190111
  Receipt Date: 20190111
  Transmission Date: 20190417
  Serious: No
  Sender: FDA-Public Use
  Company Number: US-JAZZ-2018-US-002246

PATIENT
  Sex: Male

DRUGS (3)
  1. PRIALT [Suspect]
     Active Substance: ZICONOTIDE ACETATE
     Indication: SPINAL PAIN
     Dosage: UNK ?G, QH
     Route: 037
  2. CLONIDINE. [Suspect]
     Active Substance: CLONIDINE
     Indication: SPINAL PAIN
     Dosage: UNK ?G, QH
     Route: 037
  3. BUPIVACAINE. [Suspect]
     Active Substance: BUPIVACAINE
     Indication: SPINAL PAIN
     Dosage: UNK MG, QH
     Route: 037

REACTIONS (1)
  - Musculoskeletal discomfort [Unknown]
